FAERS Safety Report 23747889 (Version 3)
Quarter: 2024Q2

REPORT INFORMATION
  Report Type: Spontaneous
  Country: AR (occurrence: AR)
  Receive Date: 20240416
  Receipt Date: 20240528
  Transmission Date: 20240716
  Serious: Yes (Other)
  Sender: FDA-Public Use
  Company Number: AR-PFIZER INC-202400086353

PATIENT
  Age: 72 Year
  Sex: Female

DRUGS (1)
  1. IBRANCE [Suspect]
     Active Substance: PALBOCICLIB
     Dosage: DAILY, 3X1 SCHEME
     Dates: start: 20180315, end: 20240229

REACTIONS (4)
  - Upper limb fracture [Unknown]
  - Burning sensation [Unknown]
  - Feeling abnormal [Unknown]
  - Liver disorder [Unknown]

NARRATIVE: CASE EVENT DATE: 20231201
